FAERS Safety Report 7170033-3 (Version None)
Quarter: 2010Q4

REPORT INFORMATION
  Report Type: 
  Country: None (occurrence: None)
  Receive Date: 20101206
  Receipt Date: 20101118
  Transmission Date: 20110411
  Serious: Yes (Death, Hospitalization)
  Sender: FDA-Public Use
  Company Number: 2010005135

PATIENT
  Age: 64 Year
  Sex: Male

DRUGS (9)
  1. ERLOTINIB HYDROCHLORIDE [Suspect]
     Indication: BRONCHIOLOALVEOLAR CARCINOMA
     Dosage: (150 MG,QD),ORAL
     Route: 048
  2. IMODIUM [Concomitant]
  3. LYRICA [Concomitant]
  4. FLECAINIDE ACETATE [Concomitant]
  5. PERMIXON (SERENOA REPENS) [Concomitant]
  6. KARDEGIC (ACETYLSALICYLATE LYSINE) [Concomitant]
  7. PREDNISOLONE [Concomitant]
  8. OMEPRAZOLE [Concomitant]
  9. ZOLPIDEM TARTRATE [Concomitant]

REACTIONS (4)
  - GENERAL PHYSICAL HEALTH DETERIORATION [None]
  - REFUSAL OF TREATMENT BY PATIENT [None]
  - RESPIRATORY FAILURE [None]
  - WEIGHT DECREASED [None]
